FAERS Safety Report 10178817 (Version 1)
Quarter: 2014Q2

REPORT INFORMATION
  Report Type: Spontaneous
  Country: US (occurrence: None)
  Receive Date: 20140515
  Receipt Date: 20140515
  Transmission Date: 20141212
  Serious: Yes (Other)
  Sender: FDA-Public Use
  Company Number: 08-AUR-03861

PATIENT
  Age: 39 Year
  Sex: Female

DRUGS (5)
  1. CITALOPRAM [Suspect]
     Indication: MAJOR DEPRESSION
  2. CITALOPRAM [Suspect]
     Indication: ANTIDEPRESSANT THERAPY
  3. FLUVOXAMINE [Suspect]
     Indication: MAJOR DEPRESSION
  4. FLUVOXAMINE [Suspect]
     Indication: ANTIDEPRESSANT THERAPY
  5. OLANZAPINE (OLANZAPINE) [Concomitant]

REACTIONS (15)
  - Catatonia [None]
  - Mutism [None]
  - Decreased appetite [None]
  - Treatment noncompliance [None]
  - Cholestasis [None]
  - Hepatocellular injury [None]
  - Biliary tract disorder [None]
  - Renal tubular necrosis [None]
  - Dialysis [None]
  - Paranoia [None]
  - Depression [None]
  - Drug-induced liver injury [None]
  - Hepatotoxicity [None]
  - Aspartate aminotransferase increased [None]
  - Alanine aminotransferase increased [None]
